FAERS Safety Report 12233801 (Version 2)
Quarter: 2016Q2

REPORT INFORMATION
  Report Type: Spontaneous
  Country: FI (occurrence: FI)
  Receive Date: 20160404
  Receipt Date: 20160422
  Transmission Date: 20160815
  Serious: Yes (Other)
  Sender: FDA-Public Use
  Company Number: FI-AMGEN-FINSP2016039826

PATIENT
  Age: 9 Year
  Sex: Female
  Weight: 24.25 kg

DRUGS (18)
  1. TREXAN                             /00113801/ [Concomitant]
     Active Substance: METHOTREXATE SODIUM
     Dosage: 7.5 MG, WEEKLY
     Dates: start: 200805, end: 201006
  2. ORFIRIL [Concomitant]
     Active Substance: VALPROIC ACID
     Dosage: 150 MG, 2X/DAY
  3. LEVOCETIRIZIN [Concomitant]
     Active Substance: LEVOCETIRIZINE DIHYDROCHLORIDE
     Dosage: OCCASIONALLY IN USE
  4. ENBREL [Suspect]
     Active Substance: ETANERCEPT
     Dosage: 10 MG, WEEKLY
     Route: 058
     Dates: start: 200810, end: 201005
  5. ENBREL [Suspect]
     Active Substance: ETANERCEPT
     Dosage: 5 MG, 2X/WEEK
     Route: 058
     Dates: start: 200805, end: 200810
  6. ENBREL [Suspect]
     Active Substance: ETANERCEPT
     Dosage: 15 MG, WEEKLY
     Route: 058
     Dates: start: 201109, end: 201412
  7. CORTICOSTEROID NOS [Concomitant]
     Active Substance: CORTICOSTEROID NOS
     Dosage: 125 UG, 2X/DAY
  8. METHOTREXATE [Concomitant]
     Active Substance: METHOTREXATE
     Indication: JUVENILE IDIOPATHIC ARTHRITIS
     Dosage: 7.5 MG, WEEKLY
     Route: 058
     Dates: start: 201006, end: 201109
  9. METHOTREXATE [Concomitant]
     Active Substance: METHOTREXATE
     Dosage: 10 MG, WEEKLY
     Route: 058
     Dates: start: 201109, end: 201206
  10. ENBREL [Suspect]
     Active Substance: ETANERCEPT
     Indication: JUVENILE IDIOPATHIC ARTHRITIS
     Dosage: UNK
     Route: 065
  11. ENBREL [Suspect]
     Active Substance: ETANERCEPT
     Dosage: 17.5 MG, WEEKLY
     Route: 065
  12. ENBREL [Suspect]
     Active Substance: ETANERCEPT
     Dosage: 13.75 MG, WEEKLY
     Route: 058
     Dates: start: 201005, end: 201109
  13. LOSEC [Concomitant]
     Active Substance: OMEPRAZOLE
     Dosage: 20 MG, 1X/DAY
  14. TREXAN                             /00113801/ [Concomitant]
     Active Substance: METHOTREXATE SODIUM
     Indication: JUVENILE IDIOPATHIC ARTHRITIS
     Dosage: 5 MG, WEEKLY
     Dates: start: 200712, end: 200805
  15. FOLIC ACID. [Concomitant]
     Active Substance: FOLIC ACID
     Dosage: 1 MG, WEEKLY
     Dates: end: 201109
  16. ENBREL [Suspect]
     Active Substance: ETANERCEPT
     Dosage: 17.5 MG, WEEKLY
     Route: 058
     Dates: start: 201412, end: 201512
  17. CORTICOSTEROID NOS [Concomitant]
     Active Substance: CORTICOSTEROID NOS
     Dosage: 125 UG, 2X/DAY
  18. FOLIC ACID. [Concomitant]
     Active Substance: FOLIC ACID
     Dosage: 2 MG, WEEKLY
     Dates: start: 201109

REACTIONS (4)
  - Juvenile idiopathic arthritis [Unknown]
  - Drug effect decreased [Unknown]
  - Iritis [Recovered/Resolved]
  - Condition aggravated [Unknown]

NARRATIVE: CASE EVENT DATE: 201509
